FAERS Safety Report 5731903-3 (Version None)
Quarter: 2008Q2

REPORT INFORMATION
  Report Type: 
  Country: None (occurrence: None)
  Receive Date: 20080506
  Receipt Date: 20080506
  Transmission Date: 20081010
  Serious: Yes (Other)
  Sender: FDA-Public Use
  Company Number: None

PATIENT
  Age: 38 Year
  Sex: Male
  Weight: 99.7913 kg

DRUGS (1)
  1. SINGULAIR [Suspect]
     Indication: RHINITIS ALLERGIC
     Dosage: 1 TABLET OD PO
     Route: 048
     Dates: start: 20080411, end: 20080502

REACTIONS (3)
  - ABNORMAL DREAMS [None]
  - DIARRHOEA [None]
  - HEADACHE [None]
